FAERS Safety Report 12696502 (Version 1)
Quarter: 2016Q3

REPORT INFORMATION
  Report Type: Spontaneous
  Country: US (occurrence: US)
  Receive Date: 20160830
  Receipt Date: 20160830
  Transmission Date: 20161109
  Serious: No
  Sender: FDA-Public Use
  Company Number: US-ASTRAZENECA-2016SE65484

PATIENT
  Age: 720 Month
  Sex: Male
  Weight: 88.5 kg

DRUGS (1)
  1. BYDUREON [Suspect]
     Active Substance: EXENATIDE
     Indication: TYPE 2 DIABETES MELLITUS
     Route: 058
     Dates: start: 201605

REACTIONS (5)
  - Injection site mass [Recovering/Resolving]
  - Device issue [Unknown]
  - Injection site extravasation [Recovering/Resolving]
  - Product use issue [Unknown]
  - Injection site pain [Recovering/Resolving]

NARRATIVE: CASE EVENT DATE: 201605
